FAERS Safety Report 8702898 (Version 2)
Quarter: 2012Q4

REPORT INFORMATION
  Report Type: Report from Study
  Country: US (occurrence: US)
  Receive Date: 20120803
  Receipt Date: 20121002
  Transmission Date: 20130627
  Serious: Yes (Life-Threatening, Hospitalization)
  Sender: FDA-Public Use
  Company Number: US-BRISTOL-MYERS SQUIBB COMPANY-16814832

PATIENT
  Age: 33 Year
  Sex: Female

DRUGS (7)
  1. ARIPIPRAZOLE [Suspect]
     Indication: SCHIZOPHRENIA
     Dosage: IM depot
     Route: 030
     Dates: start: 20120531, end: 20120627
  2. ABILIFY TABS [Suspect]
     Indication: SCHIZOPHRENIA
     Dosage: 15mg frm 03Jul12 and 20mg
     Route: 048
     Dates: start: 20120627
  3. ZOLOFT [Concomitant]
     Indication: DEPRESSION
     Route: 048
     Dates: start: 20120101
  4. ATIVAN [Concomitant]
     Dates: start: 20060101
  5. FERROUS SULFATE [Concomitant]
     Indication: MINERAL SUPPLEMENTATION
     Route: 048
  6. HALDOL [Concomitant]
     Dosage: tabs
     Route: 048
  7. PANTOPRAZOLE [Concomitant]
     Route: 048

REACTIONS (3)
  - Psychiatric symptom [Recovered/Resolved]
  - Hallucination, auditory [None]
  - Anxiety [None]
